FAERS Safety Report 9948760 (Version 1)
Quarter: 2014Q1

REPORT INFORMATION
  Report Type: Spontaneous
  Country: US (occurrence: None)
  Receive Date: 20140122
  Receipt Date: 20140122
  Transmission Date: 20141002
  Serious: Yes (Other)
  Sender: FDA-Public Use
  Company Number: AEGR000180

PATIENT
  Age: 46 Year
  Sex: Female
  Weight: 72.6 kg

DRUGS (1)
  1. JUXTAPID (LOMITAPIDE) CAPSULE, 5MG [Suspect]
     Indication: HYPERLIPIDAEMIA
     Dosage: 5 MG, QD, ORAL 27SEP2013 TO 09SEP2013 THERAPY DATES
     Route: 048
     Dates: start: 20130927, end: 20131009

REACTIONS (4)
  - Abdominal pain [None]
  - Diarrhoea [None]
  - Dry mouth [None]
  - Off label use [None]
